FAERS Safety Report 19502049 (Version 1)
Quarter: 2021Q3

REPORT INFORMATION
  Report Type: Spontaneous
  Country: US (occurrence: US)
  Receive Date: 20210707
  Receipt Date: 20210707
  Transmission Date: 20211014
  Serious: No
  Sender: FDA-Public Use
  Company Number: US-TARO-2020TAR01176

PATIENT

DRUGS (1)
  1. FLUOCINOLONE ACETONIDE TOPICAL SCALP OIL 0.01% [Suspect]
     Active Substance: FLUOCINOLONE ACETONIDE
     Indication: PRURITUS
     Dosage: USED ONCE SO FAR
     Route: 061
     Dates: start: 20200630

REACTIONS (2)
  - Eye pain [Recovered/Resolved]
  - Accidental exposure to product [Unknown]

NARRATIVE: CASE EVENT DATE: 20200630
